FAERS Safety Report 11428537 (Version 1)
Quarter: 2015Q3

REPORT INFORMATION
  Report Type: Spontaneous
  Country: US (occurrence: US)
  Receive Date: 20150828
  Receipt Date: 20150828
  Transmission Date: 20151125
  Serious: No
  Sender: FDA-Public Use
  Company Number: US-ROCHE-1198590

PATIENT
  Sex: Female

DRUGS (2)
  1. COPEGUS [Suspect]
     Active Substance: RIBAVIRIN
     Indication: CHRONIC HEPATITIS C
     Dosage: DIVIDED DOSES
     Route: 048
     Dates: start: 20120905
  2. PEGASYS [Suspect]
     Active Substance: PEGINTERFERON ALFA-2A
     Indication: CHRONIC HEPATITIS C
     Dosage: PROCLICK
     Route: 058
     Dates: start: 20120905

REACTIONS (9)
  - Nausea [Unknown]
  - Muscle spasms [Recovering/Resolving]
  - Headache [Unknown]
  - Vomiting [Unknown]
  - Vertigo [Unknown]
  - Skin ulcer [Unknown]
  - Pruritus [Unknown]
  - Rash [Unknown]
  - White blood cell count decreased [Unknown]
